FAERS Safety Report 9102562 (Version 1)
Quarter: 2013Q1

REPORT INFORMATION
  Report Type: Spontaneous
  Country: US (occurrence: US)
  Receive Date: 20130218
  Receipt Date: 20130218
  Transmission Date: 20140127
  Serious: Yes (Hospitalization, Other)
  Sender: FDA-Public Use
  Company Number: US-BAYER-2013-019000

PATIENT
  Age: 22 Year
  Sex: Female
  Weight: 95.69 kg

DRUGS (38)
  1. YASMIN [Suspect]
     Indication: CONTRACEPTION
  2. OCELLA [Suspect]
  3. ALUMINIUM CHLORIDE [Concomitant]
     Dosage: 20 %, UNKAPPLY TO AFFECTED AREAS DAILY OR AS NEEDED
     Route: 061
  4. LORATADINE [Concomitant]
     Dosage: 10 MG, UNK
     Route: 048
  5. LISINOPRIL [Concomitant]
     Indication: HEADACHE
     Dosage: 10 MG, UNK
     Route: 048
  6. IBUPROFEN [Concomitant]
     Indication: HEADACHE
     Dosage: DAILY USE
  7. IBUPROFEN [Concomitant]
     Indication: BACK PAIN
  8. IBUPROFEN [Concomitant]
     Indication: NECK PAIN
  9. METHOCARBAMOL [Concomitant]
     Dosage: 750 MG,
     Route: 048
  10. PROPOXYPHENE NAPSYLATE W/PARACETAMOL [Concomitant]
     Dosage: 650 1 T Q 4 H (INTERPRETED AS HOURS) PRN (INTERPRETED AS WHEN NEEDED)
     Route: 048
  11. NABUMETONE [Concomitant]
     Dosage: 500 MG, BID
     Route: 048
  12. DRYSOL [Concomitant]
  13. CEFAZOLIN [Concomitant]
     Dosage: 0.1-2 Q PRN
     Route: 042
  14. DEXAMETHASONE [Concomitant]
     Dosage: 0.5-12 MG PRN
     Route: 042
  15. FENTANYL [Concomitant]
     Dosage: 0-1000 MCG PRN
     Route: 042
  16. GLYCOPYRROLATE [Concomitant]
     Dosage: 0-3 MG PRN
     Route: 042
  17. KETOROLAC [Concomitant]
     Dosage: 5-30 PRN
     Route: 042
  18. LIDOCAINE [Concomitant]
     Dosage: 1% 0.1-3 ML PRN
     Route: 042
  19. LIDOCAINE [Concomitant]
     Dosage: 2% 10-100 MG
     Route: 042
  20. MIDAZOLAM [Concomitant]
     Dosage: 0.5-10 MG PRN
     Route: 042
  21. MORPHINE [Concomitant]
     Dosage: 1-10 MG PRN
     Route: 042
  22. NEOSTIGMINE [Concomitant]
     Dosage: 1-5 MG PRN
     Route: 042
  23. ONDANSETRON [Concomitant]
     Dosage: 2MG/ML 4-8 MG PRN
     Route: 042
  24. PHENYLEPHRINE [Concomitant]
     Dosage: 100-500 MCG PRN
     Route: 042
  25. PROPOFOL [Concomitant]
     Dosage: 0-200 MG PRN
     Route: 042
  26. ROCURONIUM [Concomitant]
     Dosage: 10-60 MG PRN
     Route: 042
  27. VECURONIUM [Concomitant]
     Dosage: 1-10 MG PRN
     Route: 042
  28. IRON [Concomitant]
  29. NABUTON [Concomitant]
  30. EXCEDRIN [ACETYLSALICYLIC ACID,CAFFEINE,PARACETAMOL,SALICYLAMIDE] [Concomitant]
  31. CRANBERRY [Concomitant]
  32. PERCOCET [Concomitant]
     Indication: PAIN
     Dosage: 5/325 AS NEEDED
  33. STOOL SOFTENER [Concomitant]
  34. MIRALAX [Concomitant]
  35. PROVENTIL [Concomitant]
  36. OXYCODONE [Concomitant]
     Indication: PAIN
     Dosage: 5/325 1-2 EVERY 4 HRS
  37. ALBUTEROL [Concomitant]
     Indication: MULTIPLE ALLERGIES
  38. NUVARING [Concomitant]
     Indication: CONTRACEPTION
     Dosage: UNK
     Dates: start: 20100216

REACTIONS (3)
  - Deep vein thrombosis [Recovered/Resolved]
  - Pulmonary embolism [Recovered/Resolved]
  - Cholelithiasis [None]
